FAERS Safety Report 6371687-1 (Version None)
Quarter: 2009Q3

REPORT INFORMATION
  Report Type: 
  Country: None (occurrence: None)
  Receive Date: 20090923
  Receipt Date: 20080908
  Transmission Date: 20100115
  Serious: No
  Sender: FDA-Public Use
  Company Number: US-ASTRAZENECA-2008UW14674

PATIENT
  Age: 11334 Day
  Sex: Female
  Weight: 90.3 kg

DRUGS (6)
  1. SEROQUEL [Suspect]
     Indication: HALLUCINATION
     Route: 048
  2. SEROQUEL [Suspect]
     Route: 048
  3. SEROQUEL [Suspect]
     Dosage: 100 MG QAM AND 100 Q NOON
     Route: 048
  4. SEROQUEL [Suspect]
     Route: 048
     Dates: start: 20071023
  5. KLONOPIN [Concomitant]
     Indication: ANXIETY
     Route: 048
     Dates: start: 20061106
  6. ANTIDEPRESSANT [Concomitant]

REACTIONS (4)
  - AMNESIA [None]
  - ILL-DEFINED DISORDER [None]
  - MIDDLE INSOMNIA [None]
  - SOMNAMBULISM [None]
